FAERS Safety Report 17545635 (Version 1)
Quarter: 2020Q1

REPORT INFORMATION
  Report Type: Spontaneous
  Country: US (occurrence: US)
  Receive Date: 20200315
  Receipt Date: 20200315
  Transmission Date: 20200409
  Serious: No
  Sender: FDA-Public Use
  Company Number: None

PATIENT
  Age: 73 Year
  Sex: Male
  Weight: 71.1 kg

DRUGS (4)
  1. NOVOLOG [Concomitant]
     Active Substance: INSULIN ASPART
  2. LAMICTAL XR [Suspect]
     Active Substance: LAMOTRIGINE
     Indication: SEIZURE
     Dosage: ?          QUANTITY:1 TABLET(S);?
     Route: 048
  3. DEXCOM G6 CGM [Concomitant]
  4. TANDEM X2 INSULIN PUMP [Concomitant]

REACTIONS (13)
  - Confusional state [None]
  - Apraxia [None]
  - Cognitive disorder [None]
  - Throat clearing [None]
  - Tremor [None]
  - Agitation [None]
  - Dysarthria [None]
  - Eye pain [None]
  - Memory impairment [None]
  - Gingival bleeding [None]
  - Photophobia [None]
  - Micturition urgency [None]
  - Rhinorrhoea [None]
